FAERS Safety Report 24869261 (Version 2)
Quarter: 2025Q1

REPORT INFORMATION
  Report Type: Spontaneous
  Country: FR (occurrence: FR)
  Receive Date: 20250121
  Receipt Date: 20250206
  Transmission Date: 20250408
  Serious: Yes (Other)
  Sender: SANOFI AVENTIS
  Company Number: FR-SA-2025SA001536

PATIENT
  Age: 81 Year
  Weight: 62 kg

DRUGS (6)
  1. RIFAMPIN [Suspect]
     Active Substance: RIFAMPIN
     Indication: Osteomyelitis
     Dosage: 1200 MG, QD
     Dates: start: 20241230
  2. RIFAMPIN [Suspect]
     Active Substance: RIFAMPIN
     Indication: Arthritis infective
  3. RIFAMPIN [Suspect]
     Active Substance: RIFAMPIN
     Indication: Endocarditis
  4. CLOXACILLIN [Suspect]
     Active Substance: CLOXACILLIN
     Dosage: 12 G, QD
  5. CLOXACILLIN [Suspect]
     Active Substance: CLOXACILLIN
     Dosage: 6 G, QD
  6. GENTAMICIN SULFATE [Suspect]
     Active Substance: GENTAMICIN SULFATE

REACTIONS (4)
  - Renal impairment [Unknown]
  - Condition aggravated [Unknown]
  - Product prescribing issue [Unknown]
  - Incorrect dose administered [Unknown]

NARRATIVE: CASE EVENT DATE: 20241230
